FAERS Safety Report 16019010 (Version 1)
Quarter: 2019Q1

REPORT INFORMATION
  Report Type: Other
  Country: RU (occurrence: RU)
  Receive Date: 20190228
  Receipt Date: 20190228
  Transmission Date: 20190418
  Serious: Yes (Life-Threatening, Hospitalization, Other)
  Sender: FDA-Public Use
  Company Number: RU-HQ SPECIALTY-RU-2019INT000059

PATIENT

DRUGS (4)
  1. DEXMEDETOMIDINE HYDROCHLORIDE. [Suspect]
     Active Substance: DEXMEDETOMIDINE HYDROCHLORIDE
     Indication: GENERAL ANAESTHESIA
     Dosage: 100 ?G, QD
     Route: 042
  2. DIPRIVAN [Suspect]
     Active Substance: PROPOFOL
     Indication: GENERAL ANAESTHESIA
     Dosage: 300 MG, QD
     Route: 042
  3. KETAMINE HYDROCHLORIDE. [Suspect]
     Active Substance: KETAMINE HYDROCHLORIDE
     Indication: GENERAL ANAESTHESIA
     Dosage: 140 MG, QD
     Route: 065
  4. ESMERON [Concomitant]
     Active Substance: ROCURONIUM BROMIDE
     Indication: GENERAL ANAESTHESIA
     Dosage: UNK
     Route: 042

REACTIONS (4)
  - Cardiac failure [Recovered/Resolved]
  - Respiratory arrest [Recovered/Resolved]
  - Product use in unapproved indication [Unknown]
  - Anaphylactic shock [Recovered/Resolved]

NARRATIVE: CASE EVENT DATE: 20181218
